FAERS Safety Report 15473264 (Version 3)
Quarter: 2018Q4

REPORT INFORMATION
  Report Type: Spontaneous
  Country: ZA (occurrence: ZA)
  Receive Date: 20181008
  Receipt Date: 20181016
  Transmission Date: 20190205
  Serious: Yes (Hospitalization)
  Sender: FDA-Public Use
  Company Number: ZA-PFIZER INC-2018403671

PATIENT
  Age: 66 Year
  Sex: Male

DRUGS (8)
  1. ATENOLOL. [Suspect]
     Active Substance: ATENOLOL
     Dosage: UNK
     Route: 065
  2. ECOTRIN [Suspect]
     Active Substance: ASPIRIN
     Dosage: UNK
     Route: 065
  3. EXFORGE [Suspect]
     Active Substance: AMLODIPINE BESYLATE\VALSARTAN
     Dosage: UNK
     Route: 065
  4. EPILIZINE [Suspect]
     Active Substance: VALPROATE SODIUM
     Dosage: UNK
  5. HYPOTONE [Suspect]
     Active Substance: METHYLDOPA
     Dosage: UNK
     Route: 065
  6. CARDURA XL [Suspect]
     Active Substance: DOXAZOSIN MESYLATE
     Dosage: UNK
     Route: 065
  7. TETRALYSAL [LYMECYCLINE] [Suspect]
     Active Substance: LYMECYCLINE
     Dosage: UNK
     Route: 065
  8. ZUVAMOR [Suspect]
     Active Substance: ROSUVASTATIN
     Dosage: UNK
     Route: 048

REACTIONS (1)
  - Blood pressure increased [Unknown]
